FAERS Safety Report 21788672 (Version 1)
Quarter: 2022Q4

REPORT INFORMATION
  Report Type: Spontaneous
  Country: ID (occurrence: ID)
  Receive Date: 20221228
  Receipt Date: 20221228
  Transmission Date: 20230112
  Serious: Yes (Death, Other)
  Sender: FDA-Public Use
  Company Number: ID-PFIZER INC-PV202200128369

PATIENT
  Age: 42 Month
  Sex: Male
  Weight: 9.4 kg

DRUGS (4)
  1. CYTARABINE [Suspect]
     Active Substance: CYTARABINE
     Indication: Juvenile chronic myelomonocytic leukaemia
     Dosage: 10 MG/M2, WEEKLY,EXCEPT FOR THE VERY FIRST WEEK (3 WEEKS)
     Route: 058
  2. CYTARABINE [Suspect]
     Active Substance: CYTARABINE
     Dosage: INCREASED BY 20%
     Route: 058
  3. MERCAPTOPURINE [Suspect]
     Active Substance: MERCAPTOPURINE
     Indication: Juvenile chronic myelomonocytic leukaemia
     Dosage: 10 MG/M2, DAILY (4 CYCLES OF A 4-WEEKS REGIMEN OF 3 WEEKS)
     Route: 048
  4. MERCAPTOPURINE [Suspect]
     Active Substance: MERCAPTOPURINE
     Dosage: INCREASED BY 20% IN THE SECOND CYCLE
     Route: 048

REACTIONS (4)
  - Sepsis [Fatal]
  - Neutropenia [Fatal]
  - Thrombocytopenia [Fatal]
  - Endophthalmitis [Fatal]
